FAERS Safety Report 18467504 (Version 1)
Quarter: 2020Q4

REPORT INFORMATION
  Report Type: Spontaneous
  Country: US (occurrence: US)
  Receive Date: 20201104
  Receipt Date: 20201104
  Transmission Date: 20210114
  Serious: Yes (Other)
  Sender: FDA-Public Use
  Company Number: None

PATIENT
  Age: 33 Year
  Sex: Female
  Weight: 60.75 kg

DRUGS (5)
  1. COLLAGEN [Concomitant]
     Active Substance: COLLAGEN
  2. WOMEN^S PRE-NATAL VITAMIN COMPLEX [Concomitant]
  3. PRO-BIOTIC [Concomitant]
  4. PSYLLIUM FIBER [Concomitant]
  5. STIMATE [Suspect]
     Active Substance: DESMOPRESSIN ACETATE
     Indication: DELIVERY
     Dates: start: 20200307, end: 20200307

REACTIONS (2)
  - Vascular injury [None]
  - Pain in extremity [None]

NARRATIVE: CASE EVENT DATE: 20200307
